FAERS Safety Report 17409019 (Version 1)
Quarter: 2020Q1

REPORT INFORMATION
  Report Type: Spontaneous
  Country: FR (occurrence: FR)
  Receive Date: 20200212
  Receipt Date: 20200212
  Transmission Date: 20200409
  Serious: Yes (Hospitalization)
  Sender: FDA-Public Use
  Company Number: FR-MYLANLABS-2020M1015329

PATIENT
  Age: 83 Year
  Sex: Female
  Weight: 88 kg

DRUGS (17)
  1. TIORFAN [Suspect]
     Active Substance: RACECADOTRIL
     Indication: DIARRHOEA
     Dosage: UNK
     Route: 048
     Dates: start: 20191102, end: 20191106
  2. PYOSTACINE [Suspect]
     Active Substance: PRISTINAMYCIN
     Indication: LUNG DISORDER
     Dosage: UNK
     Route: 048
     Dates: start: 20191031, end: 20191102
  3. TANGANIL [Concomitant]
     Active Substance: ACETYLLEUCINE
     Dosage: UNK
  4. IKOREL [Concomitant]
     Active Substance: NICORANDIL
     Dosage: UNK
  5. JANUVIA [Concomitant]
     Active Substance: SITAGLIPTIN PHOSPHATE
     Dosage: UNK
  6. LEVOTHYROX [Concomitant]
     Active Substance: LEVOTHYROXINE
     Dosage: UNK
  7. STILNOX [Concomitant]
     Active Substance: ZOLPIDEM TARTRATE
     Dosage: UNK
  8. RIVOTRIL [Concomitant]
     Active Substance: CLONAZEPAM
     Dosage: UNK
  9. IPERTEN [Concomitant]
     Active Substance: MANIDIPINE
     Dosage: UNK
  10. MIANSERINE HCL [Concomitant]
     Active Substance: MIANSERIN HYDROCHLORIDE
     Dosage: UNK
  11. PLAVIX [Concomitant]
     Active Substance: CLOPIDOGREL BISULFATE
     Dosage: UNK
  12. NEBIVOLOL. [Concomitant]
     Active Substance: NEBIVOLOL
     Dosage: UNK
  13. DELURSAN [Concomitant]
     Active Substance: URSODIOL
     Dosage: UNK
  14. OMEPRAZOLE. [Suspect]
     Active Substance: OMEPRAZOLE
     Indication: PRODUCT USED FOR UNKNOWN INDICATION
     Dosage: UNK
     Route: 048
     Dates: start: 20191102, end: 20191106
  15. TOVIAZ [Concomitant]
     Active Substance: FESOTERODINE FUMARATE
     Dosage: UNK
  16. CONTRAMAL [Concomitant]
     Active Substance: TRAMADOL HYDROCHLORIDE
     Dosage: UNK
  17. GLUCOPHAGE [Concomitant]
     Active Substance: METFORMIN HYDROCHLORIDE
     Dosage: UNK

REACTIONS (1)
  - Fixed eruption [Recovered/Resolved]

NARRATIVE: CASE EVENT DATE: 20191102
